FAERS Safety Report 7350312-7 (Version None)
Quarter: 2011Q1

REPORT INFORMATION
  Report Type: 
  Country: None (occurrence: None)
  Receive Date: 20110222
  Receipt Date: 20101223
  Transmission Date: 20110831
  Serious: No
  Sender: FDA-Public Use
  Company Number: 024629

PATIENT
  Age: 19 Year
  Sex: Female

DRUGS (4)
  1. LACOSAMIDE [Suspect]
     Dosage: (50 MG BID), (100 MG BID)
     Dates: start: 20101205, end: 20101211
  2. LACOSAMIDE [Suspect]
     Dosage: (50 MG BID), (100 MG BID)
     Dates: start: 20011212
  3. FOLIC ACID [Concomitant]
  4. LAMICTAL [Concomitant]

REACTIONS (1)
  - CONVULSION [None]
